FAERS Safety Report 4559491-8 (Version None)
Quarter: 2005Q1

REPORT INFORMATION
  Report Type: 
  Country: None (occurrence: None)
  Receive Date: 20050119
  Receipt Date: 20050112
  Transmission Date: 20050727
  Serious: Yes (Other)
  Sender: FDA-Public Use
  Company Number: 2005012043

PATIENT
  Age: 8 Year
  Sex: Female
  Weight: 31.3 kg

DRUGS (4)
  1. GENOTROPIN [Suspect]
     Indication: HYPOPITUITARISM
     Dates: start: 20030601, end: 20040826
  2. LEVPTHYROXINE SODIUM (LEVOTHYROXINE SODIUM) [Concomitant]
  3. DESMOPRESSIN ACETATE (DESMOPRESSIN ACETATE) [Concomitant]
  4. HYDROCORTISONE [Concomitant]

REACTIONS (1)
  - PITUITARY TUMOUR REMOVAL [None]
